FAERS Safety Report 8115333-5 (Version None)
Quarter: 2012Q1

REPORT INFORMATION
  Report Type: 
  Country: None (occurrence: None)
  Receive Date: 20120206
  Receipt Date: 20120206
  Transmission Date: 20120608
  Serious: Yes (Other)
  Sender: FDA-Public Use
  Company Number: None

PATIENT
  Age: 35 Year
  Sex: Female
  Weight: 69.399 kg

DRUGS (1)
  1. TOPAMAX [Suspect]
     Dosage: 1X A DAY

REACTIONS (1)
  - ALOPECIA [None]
